FAERS Safety Report 5751769-5 (Version None)
Quarter: 2008Q2

REPORT INFORMATION
  Report Type: 
  Country: None (occurrence: None)
  Receive Date: 20080529
  Receipt Date: 20080527
  Transmission Date: 20081010
  Serious: Yes (Hospitalization)
  Sender: FDA-Public Use
  Company Number: ZA-JNJFOC-20080505396

PATIENT
  Age: 80 Year
  Sex: Female

DRUGS (6)
  1. DURAGESIC-100 [Suspect]
     Route: 062
  2. DURAGESIC-100 [Suspect]
     Indication: DRUG USE FOR UNKNOWN INDICATION
     Route: 062
  3. LENTOGESIC [Concomitant]
  4. SYNDOL [Concomitant]
  5. ELTROXIN [Concomitant]
  6. SENOKOT [Concomitant]

REACTIONS (5)
  - DRUG INEFFECTIVE [None]
  - ERYTHEMA [None]
  - HALLUCINATION [None]
  - PRURITUS GENERALISED [None]
  - PSYCHOTIC DISORDER [None]
